FAERS Safety Report 7628327-0 (Version None)
Quarter: 2011Q3

REPORT INFORMATION
  Report Type: 
  Country: None (occurrence: None)
  Receive Date: 20110722
  Receipt Date: 20110713
  Transmission Date: 20111222
  Serious: Yes (Other)
  Sender: FDA-Public Use
  Company Number: US-JNJFOC-20110706791

PATIENT
  Sex: Female
  Weight: 81.65 kg

DRUGS (1)
  1. NUCYNTA [Suspect]
     Indication: PAIN
     Dosage: 1 EVERY 6 HOURS
     Route: 048
     Dates: start: 20100608, end: 20100806

REACTIONS (2)
  - AMNESIA [None]
  - CIRCULATORY COLLAPSE [None]
